FAERS Safety Report 19046301 (Version 2)
Quarter: 2021Q2

REPORT INFORMATION
  Report Type: Spontaneous
  Country: KR (occurrence: KR)
  Receive Date: 20210323
  Receipt Date: 20210510
  Transmission Date: 20210717
  Serious: Yes (Other)
  Sender: FDA-Public Use
  Company Number: KR-ELI_LILLY_AND_COMPANY-KR202103009680

PATIENT
  Age: 74 Year
  Sex: Male

DRUGS (1)
  1. TRULICITY [Suspect]
     Active Substance: DULAGLUTIDE
     Indication: DIABETES MELLITUS
     Dosage: 0.75 MG, WEEKLY (1/W)
     Route: 065

REACTIONS (12)
  - Hyperhidrosis [Unknown]
  - Nausea [Recovered/Resolved]
  - Retching [Recovered/Resolved]
  - Abdominal discomfort [Unknown]
  - Vomiting [Unknown]
  - Increased appetite [Not Recovered/Not Resolved]
  - Faeces discoloured [Recovered/Resolved]
  - Feeding disorder [Recovered/Resolved]
  - Weight increased [Not Recovered/Not Resolved]
  - Diarrhoea [Recovered/Resolved]
  - Expired product administered [Recovered/Resolved]
  - Frequent bowel movements [Recovering/Resolving]

NARRATIVE: CASE EVENT DATE: 20210313
